FAERS Safety Report 9247877 (Version 1)
Quarter: 2013Q2

REPORT INFORMATION
  Report Type: Spontaneous
  Country: FR (occurrence: FR)
  Receive Date: 20130423
  Receipt Date: 20130423
  Transmission Date: 20140414
  Serious: Yes (Hospitalization, Other)
  Sender: FDA-Public Use
  Company Number: FR-BRISTOL-MYERS SQUIBB COMPANY-18797456

PATIENT
  Age: 89 Year
  Sex: Female
  Weight: 60 kg

DRUGS (3)
  1. COUMADIN TABS [Suspect]
     Indication: ATRIAL FIBRILLATION
     Route: 048
     Dates: start: 20130306
  2. CORDARONE [Concomitant]
  3. HEMI-DAONIL [Concomitant]

REACTIONS (5)
  - Hypovolaemic shock [Unknown]
  - Haemorrhage [Unknown]
  - Haematemesis [Unknown]
  - Head injury [Unknown]
  - Fall [Unknown]
